FAERS Safety Report 6160708-7 (Version None)
Quarter: 2009Q2

REPORT INFORMATION
  Report Type: 
  Country: None (occurrence: None)
  Receive Date: 20090416
  Receipt Date: 20090406
  Transmission Date: 20091009
  Serious: Yes (Hospitalization)
  Sender: FDA-Public Use
  Company Number: 1-18029877

PATIENT
  Age: 5 Year
  Sex: Male

DRUGS (1)
  1. CARBAMAZEPINE [Suspect]
     Indication: CONVULSION
     Dosage: 300 MG DAILY, ORAL
     Route: 048

REACTIONS (5)
  - BLOOD CULTURE POSITIVE [None]
  - ESCHERICHIA INFECTION [None]
  - HYPOPHAGIA [None]
  - NEUTROPENIA [None]
  - TOXIC EPIDERMAL NECROLYSIS [None]
